FAERS Safety Report 20844496 (Version 2)
Quarter: 2024Q2

REPORT INFORMATION
  Report Type: Report from Study
  Country: EG (occurrence: EG)
  Receive Date: 20220518
  Receipt Date: 20240425
  Transmission Date: 20240716
  Serious: Yes (Other)
  Sender: FDA-Public Use
  Company Number: EG-NOVARTISPH-NVSC2022EG113483

PATIENT
  Sex: Female

DRUGS (2)
  1. TASIGNA [Suspect]
     Active Substance: NILOTINIB
     Indication: Chronic myeloid leukaemia
     Dosage: 600 MG, QD (4 CAPS OF TASIGNA 150MG, 2 YEARS AND 7 OR 8 MONTHS AGO)
     Route: 048
  2. TASIGNA [Suspect]
     Active Substance: NILOTINIB
     Dosage: 600 MG, QD (3 CAPS OF TASIGNA 200MG)
     Route: 048
     Dates: end: 202204

REACTIONS (13)
  - Depressed mood [Not Recovered/Not Resolved]
  - Abdominal distension [Not Recovered/Not Resolved]
  - Depression [Not Recovered/Not Resolved]
  - Weight increased [Not Recovered/Not Resolved]
  - Swelling [Not Recovered/Not Resolved]
  - Tooth injury [Not Recovered/Not Resolved]
  - Dental caries [Not Recovered/Not Resolved]
  - Pulpitis dental [Not Recovered/Not Resolved]
  - Toothache [Not Recovered/Not Resolved]
  - Ear pain [Not Recovered/Not Resolved]
  - Weight decreased [Recovered/Resolved]
  - Amnesia [Not Recovered/Not Resolved]
  - Product dose omission issue [Recovered/Resolved]
